FAERS Safety Report 4860581-0 (Version None)
Quarter: 2005Q4

REPORT INFORMATION
  Report Type: 
  Country: None (occurrence: None)
  Receive Date: 20051219
  Receipt Date: 20050725
  Transmission Date: 20060501
  Serious: Yes (Hospitalization)
  Sender: FDA-Public Use
  Company Number: US-MERCK-0507USA03906

PATIENT
  Age: 44 Year
  Sex: Male
  Weight: 111 kg

DRUGS (11)
  1. VIOXX [Suspect]
     Indication: PAIN
     Route: 048
     Dates: start: 20011016, end: 20011024
  2. VIOXX [Suspect]
     Route: 048
     Dates: start: 20011025, end: 20011211
  3. VIOXX [Suspect]
     Route: 048
     Dates: start: 20011212, end: 20020321
  4. VIOXX [Suspect]
     Route: 048
     Dates: start: 20020103, end: 20020321
  5. VIOXX [Suspect]
     Route: 048
     Dates: start: 20020711, end: 20040930
  6. VIOXX [Suspect]
     Indication: INFLAMMATION
     Route: 048
     Dates: start: 20011016, end: 20011024
  7. VIOXX [Suspect]
     Route: 048
     Dates: start: 20011025, end: 20011211
  8. VIOXX [Suspect]
     Route: 048
     Dates: start: 20011212, end: 20020321
  9. VIOXX [Suspect]
     Route: 048
     Dates: start: 20020103, end: 20020321
  10. VIOXX [Suspect]
     Route: 048
     Dates: start: 20020711, end: 20040930
  11. OXYCONTIN [Concomitant]
     Indication: PAIN
     Route: 065

REACTIONS (7)
  - BREAKTHROUGH PAIN [None]
  - CORONARY ARTERY DISEASE [None]
  - CORONARY ARTERY STENOSIS [None]
  - DEPRESSION [None]
  - HAEMATOCRIT DECREASED [None]
  - MYOCARDIAL INFARCTION [None]
  - WRONG TECHNIQUE IN DRUG USAGE PROCESS [None]
